FAERS Safety Report 20992909 (Version 1)
Quarter: 2022Q2

REPORT INFORMATION
  Report Type: Spontaneous
  Country: US (occurrence: None)
  Receive Date: 20220621
  Receipt Date: 20220621
  Transmission Date: 20220721
  Serious: Yes (Death)
  Sender: FDA-Public Use
  Company Number: None

PATIENT
  Age: 69 Year
  Sex: Male
  Weight: 93 kg

DRUGS (9)
  1. MYCOPHENOLATE MOFETIL [Suspect]
     Active Substance: MYCOPHENOLATE MOFETIL
     Indication: Renal transplant
     Dosage: 1000MG BID PO??
     Route: 048
     Dates: start: 202103, end: 20220620
  2. TACROLIMUS [Suspect]
     Active Substance: TACROLIMUS
     Indication: Renal transplant
     Dosage: 9MG BID PO?
     Route: 048
     Dates: start: 202103, end: 20220620
  3. VALGANCICLOVIR [Concomitant]
     Active Substance: VALGANCICLOVIR
  4. FAMOTIDINE [Concomitant]
     Active Substance: FAMOTIDINE
  5. PREDNISONE [Concomitant]
     Active Substance: PREDNISONE
  6. FINASTERIDE [Concomitant]
     Active Substance: FINASTERIDE
  7. ELIQUIS [Concomitant]
     Active Substance: APIXABAN
  8. MAGNESIUM OXIDE [Concomitant]
     Active Substance: MAGNESIUM OXIDE
  9. NIFEDIPINE [Concomitant]
     Active Substance: NIFEDIPINE

REACTIONS (3)
  - Coagulopathy [None]
  - Renal disorder [None]
  - Renal transplant failure [None]

NARRATIVE: CASE EVENT DATE: 20220620
